FAERS Safety Report 4397847-7 (Version None)
Quarter: 2004Q2

REPORT INFORMATION
  Report Type: 
  Country: None (occurrence: None)
  Receive Date: 20040621
  Receipt Date: 20040331
  Transmission Date: 20050107
  Serious: Yes (Hospitalization)
  Sender: FDA-Public Use
  Company Number: USA-2004-0014286

PATIENT
  Age: 5 Year
  Sex: Female

DRUGS (4)
  1. OXYCONTIN [Suspect]
     Dosage: UNK UNK, UNK, UNKNOWN
     Route: 065
  2. MORPHINE SULFATE [Suspect]
     Dosage: UNK UNK, UNK, UNKNOWN
     Route: 065
  3. VICODIN [Suspect]
     Dosage: UNK UNK, UNK, UNKNOWN
     Route: 065
  4. PERCOCET [Suspect]
     Dosage: UNK UNK, UNK, UNKNOWN
     Route: 065

REACTIONS (3)
  - ACCIDENTAL OVERDOSE [None]
  - MALAISE [None]
  - MULTIPLE DRUG OVERDOSE [None]
